FAERS Safety Report 22939269 (Version 2)
Quarter: 2024Q3

REPORT INFORMATION
  Report Type: Spontaneous
  Country: US (occurrence: US)
  Receive Date: 20230913
  Receipt Date: 20240801
  Transmission Date: 20241016
  Serious: No
  Sender: VERTEX
  Company Number: US-VERTEX PHARMACEUTICALS-2023-013454

PATIENT

DRUGS (4)
  1. TRIKAFTA [Suspect]
     Active Substance: ELEXACAFTOR\IVACAFTOR\TEZACAFTOR
     Indication: Cystic fibrosis
     Dosage: FULL DOSE
     Route: 048
  2. TRIKAFTA [Suspect]
     Active Substance: ELEXACAFTOR\IVACAFTOR\TEZACAFTOR
     Dosage: UNKNOWN (PLAYED WITH DOSES A LOT)
     Route: 048
  3. TRIKAFTA [Suspect]
     Active Substance: ELEXACAFTOR\IVACAFTOR\TEZACAFTOR
     Dosage: REDUCED; 1 ORANGE TAB IN AM; 1 ORANGE PILL IN PM; NO BLUE PILL
     Route: 048
  4. TRIKAFTA [Suspect]
     Active Substance: ELEXACAFTOR\IVACAFTOR\TEZACAFTOR
     Dosage: ORANGE PILL ONCE DAILY
     Route: 048

REACTIONS (6)
  - Mental disorder [Recovering/Resolving]
  - Insomnia [Unknown]
  - Paranoia [Unknown]
  - Irritability [Unknown]
  - Bipolar II disorder [Recovering/Resolving]
  - Attention deficit hyperactivity disorder [Recovering/Resolving]
